FAERS Safety Report 20137577 (Version 1)
Quarter: 2021Q4

REPORT INFORMATION
  Report Type: Spontaneous
  Country: BG (occurrence: BG)
  Receive Date: 20211201
  Receipt Date: 20211201
  Transmission Date: 20220303
  Serious: Yes (Other)
  Sender: FDA-Public Use
  Company Number: BG-SUN PHARMACEUTICAL INDUSTRIES LTD-2021R1-319263

PATIENT
  Age: 37 Year
  Sex: Female

DRUGS (2)
  1. DEXAMETHASONE [Suspect]
     Active Substance: DEXAMETHASONE
     Indication: Immune thrombocytopenia
     Dosage: HIGH DOSE
     Route: 065
  2. METHYLPREDNISOLONE [Suspect]
     Active Substance: METHYLPREDNISOLONE
     Indication: Immune thrombocytopenia
     Dosage: UNK
     Route: 048

REACTIONS (2)
  - Exposure during pregnancy [Unknown]
  - Condition aggravated [Unknown]
